FAERS Safety Report 8621407-2 (Version None)
Quarter: 2012Q3

REPORT INFORMATION
  Report Type: 
  Country: None (occurrence: None)
  Receive Date: 20120824
  Receipt Date: 20120822
  Transmission Date: 20120928
  Serious: No
  Sender: FDA-Public Use
  Company Number: US-PFIZER INC-2012206929

PATIENT
  Age: 48 Year
  Sex: Female
  Weight: 90.703 kg

DRUGS (3)
  1. ESTRADIOL [Concomitant]
     Indication: POSTOPERATIVE CARE
     Dosage: UNK
  2. EFFEXOR XR [Suspect]
     Indication: ANXIETY
     Dosage: 150 MG, 1X/DAY
     Route: 048
  3. PRILOSEC [Concomitant]
     Indication: GASTROOESOPHAGEAL REFLUX DISEASE
     Dosage: UNK

REACTIONS (2)
  - ALLERGY TO ANIMAL [None]
  - HYPOTHYROIDISM [None]
